FAERS Safety Report 25325958 (Version 1)
Quarter: 2025Q2

REPORT INFORMATION
  Report Type: Spontaneous
  Country: GB (occurrence: GB)
  Receive Date: 20250516
  Receipt Date: 20250516
  Transmission Date: 20250717
  Serious: Yes (Other)
  Sender: ELI LILLY AND COMPANY
  Company Number: GB-MHRA-TPP2767688C13984568YC1746353903583

PATIENT
  Age: 34 Year
  Sex: Female
  Weight: 94 kg

DRUGS (7)
  1. MOUNJARO [Suspect]
     Active Substance: TIRZEPATIDE
     Indication: Product used for unknown indication
     Route: 065
  2. FERROUS FUMARATE [Concomitant]
     Active Substance: FERROUS FUMARATE
     Indication: Ill-defined disorder
     Dosage: 1 DOSAGE FORM, DAILY
     Dates: start: 20250218
  3. VENLAFAXINE [Concomitant]
     Active Substance: VENLAFAXINE HYDROCHLORIDE
     Indication: Ill-defined disorder
     Dosage: 2 DOSAGE FORM, DAILY
     Dates: start: 20240724
  4. PROPANTHELINE BROMIDE [Concomitant]
     Active Substance: PROPANTHELINE BROMIDE
     Indication: Ill-defined disorder
     Dates: start: 20240827
  5. FERROUS SULFATE [Concomitant]
     Active Substance: FERROUS SULFATE
     Indication: Ill-defined disorder
     Dosage: 1 DOSAGE FORM, DAILY
     Dates: start: 20241203, end: 20250218
  6. FOLIC ACID [Concomitant]
     Active Substance: FOLIC ACID
     Indication: Ill-defined disorder
     Dosage: 1 DOSAGE FORM, DAILY
     Dates: start: 20241203
  7. PROPRANOLOL [Concomitant]
     Active Substance: PROPRANOLOL HYDROCHLORIDE
     Indication: Ill-defined disorder
     Dosage: 1 DOSAGE FORM, EACH MORNING
     Dates: start: 20241203

REACTIONS (3)
  - Sialoadenitis [Unknown]
  - Neck pain [Unknown]
  - Nausea [Recovering/Resolving]
